FAERS Safety Report 6295615-2 (Version None)
Quarter: 2009Q3

REPORT INFORMATION
  Report Type: 
  Country: None (occurrence: None)
  Receive Date: 20090731
  Receipt Date: 20090723
  Transmission Date: 20100115
  Serious: Yes (Hospitalization)
  Sender: FDA-Public Use
  Company Number: OMPQ-NO-0907S-0687

PATIENT
  Age: 58 Year
  Sex: Male
  Weight: 70 kg

DRUGS (9)
  1. OMNIPAQUE 300 [Suspect]
     Indication: DRUG USE FOR UNKNOWN INDICATION
     Dosage: REPORTED 647 MG, SINGLE DOSE, I.V.
     Route: 042
     Dates: start: 20090428, end: 20090428
  2. IFOSFAMIDA [Concomitant]
  3. KYTRIL [Concomitant]
  4. DEXAMETASONA [Concomitant]
  5. MESNA (UROMITEXAN) [Concomitant]
  6. OMEPRAZOL [Concomitant]
  7. PARAFIN LIQUIDA (EMULIQUEN SIMPLE) [Concomitant]
  8. LORAZEPAM (ORFIDAL) [Concomitant]
  9. PARACETAMOL [Concomitant]

REACTIONS (4)
  - RENAL FAILURE ACUTE [None]
  - RENAL TUBULAR ATROPHY [None]
  - RENAL TUBULAR NECROSIS [None]
  - TUBULOINTERSTITIAL NEPHRITIS [None]
